FAERS Safety Report 7378928-2 (Version None)
Quarter: 2011Q1

REPORT INFORMATION
  Report Type: 
  Country: None (occurrence: None)
  Receive Date: 20110328
  Receipt Date: 20110315
  Transmission Date: 20110831
  Serious: Yes (Hospitalization)
  Sender: FDA-Public Use
  Company Number: PHHY2011GB20753

PATIENT
  Age: 86 Year
  Sex: Female

DRUGS (7)
  1. ASPIRIN [Concomitant]
  2. CO-AMILOFRUSE [Suspect]
     Indication: MYOCARDIAL ISCHAEMIA
     Dosage: UNK
     Route: 048
     Dates: end: 20110302
  3. ATENOLOL [Concomitant]
     Indication: MYOCARDIAL ISCHAEMIA
  4. ATORVASTATIN CALCIUM [Concomitant]
  5. PARACETAMOL [Concomitant]
  6. RAMIPRIL [Suspect]
     Indication: HYPERTENSION
     Dosage: 5 MG, QD
     Route: 048
     Dates: end: 20110228
  7. OMEPRAZOLE [Concomitant]

REACTIONS (4)
  - FALL [None]
  - DISORIENTATION [None]
  - ORTHOSTATIC HYPOTENSION [None]
  - BLOOD PRESSURE SYSTOLIC DECREASED [None]
